FAERS Safety Report 19139589 (Version 3)
Quarter: 2021Q2

REPORT INFORMATION
  Report Type: Report from Study
  Country: CO (occurrence: CO)
  Receive Date: 20210415
  Receipt Date: 20210426
  Transmission Date: 20210717
  Serious: Yes (Death, Hospitalization, Other)
  Sender: FDA-Public Use
  Company Number: CO-ASTELLAS-2019US025055

PATIENT
  Age: 74 Year
  Sex: Male

DRUGS (4)
  1. TACROLIMUS. [Suspect]
     Active Substance: TACROLIMUS
     Indication: RENAL TRANSPLANT
     Route: 048
     Dates: start: 20141105
  2. PREDNISOLONE. [Concomitant]
     Active Substance: PREDNISOLONE
     Indication: RENAL TRANSPLANT
     Route: 048
     Dates: start: 20141122
  3. TACROLIMUS. [Suspect]
     Active Substance: TACROLIMUS
     Dosage: 2 MG (2 CAPSULES OF 1MG) ONCE DAILY
     Route: 048
     Dates: start: 20141122
  4. AZATHIOPRINE. [Concomitant]
     Active Substance: AZATHIOPRINE
     Indication: RENAL TRANSPLANT
     Route: 048
     Dates: start: 20141122

REACTIONS (6)
  - Cerebral ischaemia [Fatal]
  - Kidney transplant rejection [Fatal]
  - Bronchitis [Recovered/Resolved]
  - Blood creatinine increased [Recovered/Resolved]
  - Urinary retention [Recovered/Resolved]
  - Secondary immunodeficiency [Unknown]

NARRATIVE: CASE EVENT DATE: 20190506
